FAERS Safety Report 13467483 (Version 1)
Quarter: 2017Q2

REPORT INFORMATION
  Report Type: Spontaneous
  Country: FR (occurrence: FR)
  Receive Date: 20170421
  Receipt Date: 20170421
  Transmission Date: 20170830
  Serious: Yes (Disabling)
  Sender: FDA-Public Use
  Company Number: FR-FRESENIUS KABI-FK201703207

PATIENT
  Age: 38 Year
  Sex: Female

DRUGS (4)
  1. VEPESIDE [Suspect]
     Active Substance: ETOPOSIDE
     Indication: OVARIAN CANCER
     Route: 042
     Dates: start: 20160614, end: 20160618
  2. HOLOXAN [Suspect]
     Active Substance: IFOSFAMIDE
     Indication: OVARIAN CANCER
     Route: 042
     Dates: start: 20160614, end: 20160618
  3. UROMITEXAN [Suspect]
     Active Substance: MESNA
     Indication: PRODUCT USED FOR UNKNOWN INDICATION
     Route: 042
     Dates: start: 20160614
  4. CARBOPLATIN INJECTION 10MG/ML [Suspect]
     Active Substance: CARBOPLATIN
     Indication: OVARIAN CANCER
     Route: 042
     Dates: start: 20160614, end: 20160618

REACTIONS (8)
  - Renal tubular necrosis [Unknown]
  - Hypertension [Recovered/Resolved with Sequelae]
  - Hallucination [Unknown]
  - Psychomotor retardation [Unknown]
  - Aplasia [Unknown]
  - Fanconi syndrome [Unknown]
  - Acute kidney injury [Unknown]
  - Encephalopathy [Unknown]

NARRATIVE: CASE EVENT DATE: 20160618
